FAERS Safety Report 9966161 (Version 1)
Quarter: 2014Q1

REPORT INFORMATION
  Report Type: Report from Study
  Country: US (occurrence: US)
  Receive Date: 20140305
  Receipt Date: 20140305
  Transmission Date: 20141002
  Serious: No
  Sender: FDA-Public Use
  Company Number: US-ABBVIE-13P-163-1122938-00

PATIENT
  Age: 41 Year
  Sex: Female

DRUGS (15)
  1. HUMIRA [Suspect]
     Indication: CROHN^S DISEASE
     Dates: start: 20130705
  2. LEXAPRO [Concomitant]
     Indication: DEPRESSION
     Dosage: IN MORNING
  3. LEXAPRO [Concomitant]
     Indication: ANXIETY
  4. WELLBUTRIN [Concomitant]
     Indication: DEPRESSION
     Dosage: IN MORNING
  5. WELLBUTRIN [Concomitant]
     Indication: ANXIETY
  6. XANAX [Concomitant]
     Indication: DEPRESSION
     Dosage: AT NIGHT
  7. XANAX [Concomitant]
     Indication: ANXIETY
  8. HYDROCODONE [Concomitant]
     Indication: PAIN
     Dosage: 10/325 1/2 TAB EVERY 4-6 HOURS AS NEEDED
  9. HYDROCORTISONE [Concomitant]
     Indication: PRODUCT USED FOR UNKNOWN INDICATION
     Dosage: AT NIGHT
  10. FLAGYL [Concomitant]
     Indication: FISTULA
  11. FLAGYL [Concomitant]
     Indication: INTESTINAL STENOSIS
  12. FLAGYL [Concomitant]
     Indication: SKIN FISSURES
  13. MULTIVITAMIN [Concomitant]
     Indication: VITAMIN SUPPLEMENTATION
     Dosage: DAILY
  14. CALCIUM/MAGNESIUM/ZINC COMBO [Concomitant]
     Indication: VITAMIN SUPPLEMENTATION
     Dosage: 1 TAB DAILY
  15. VITAMIN D [Concomitant]
     Indication: VITAMIN SUPPLEMENTATION
     Dosage: 5000 UNITS DAILY

REACTIONS (2)
  - Pain [Not Recovered/Not Resolved]
  - Drug ineffective [Not Recovered/Not Resolved]
